FAERS Safety Report 20305492 (Version 1)
Quarter: 2022Q1

REPORT INFORMATION
  Report Type: Spontaneous
  Country: US (occurrence: US)
  Receive Date: 20220106
  Receipt Date: 20220106
  Transmission Date: 20220424
  Serious: Yes (Hospitalization)
  Sender: FDA-Public Use
  Company Number: US-AMNEAL PHARMACEUTICALS-2021-AMRX-00744

PATIENT
  Age: 36 Year
  Sex: Female
  Weight: 79 kg

DRUGS (11)
  1. ACTIVELLA [Suspect]
     Active Substance: ESTRADIOL\NORETHINDRONE ACETATE
     Indication: Endometriosis
     Dosage: 1 DOSAGE FORM, 1 /DAY
     Route: 048
     Dates: start: 20190918
  2. ELAGOLIX [Suspect]
     Active Substance: ELAGOLIX
     Indication: Endometriosis
     Dosage: 200 MILLIGRAM, 2 /DAY
     Route: 065
     Dates: start: 20190918
  3. CELECOXIB [Concomitant]
     Active Substance: CELECOXIB
     Indication: Depression
     Dosage: 20 MILLIGRAM, 1 /DAY
     Route: 048
     Dates: start: 20200710, end: 20201106
  4. CELECOXIB [Concomitant]
     Active Substance: CELECOXIB
     Dosage: 20 MILLIGRAM, 1 /DAY
     Route: 048
     Dates: start: 20201130
  5. IBUPROFEN [Concomitant]
     Active Substance: IBUPROFEN
     Indication: Endometriosis
     Dosage: 200 MILLIGRAM (AS REQUIRED)
     Route: 048
     Dates: start: 20130115, end: 20180820
  6. IBUPROFEN [Concomitant]
     Active Substance: IBUPROFEN
     Indication: Ligament sprain
     Dosage: 200 MILLIGRAM (AS REQUIRED)
     Route: 048
     Dates: start: 20191010
  7. TYLENOL [Concomitant]
     Active Substance: ACETAMINOPHEN
     Indication: Endometriosis
     Dosage: 500 MILLIGRAM (AS REQUIRED)
     Route: 048
     Dates: start: 20130115, end: 20180820
  8. TYLENOL [Concomitant]
     Active Substance: ACETAMINOPHEN
     Indication: Ligament sprain
     Dosage: 500 MILLIGRAM (AS REQUIRED)
     Route: 048
     Dates: start: 20191010
  9. SYNTHROID [Concomitant]
     Active Substance: LEVOTHYROXINE SODIUM
     Indication: Hypothyroidism
     Dosage: 50 MICROGRAM, 1 /DAY
     Route: 048
     Dates: start: 20200710, end: 20201106
  10. SYNTHROID [Concomitant]
     Active Substance: LEVOTHYROXINE SODIUM
     Dosage: 50 MICROGRAM, 1 /DAY
     Route: 048
     Dates: start: 20201130
  11. EQUATE MUCUS RELIEF SEVERE CONGESTION + COUGH [Concomitant]
     Indication: Sinus congestion
     Dosage: 60 MILLIGRAM (AS REQUIRED)
     Route: 048
     Dates: start: 20200213

REACTIONS (1)
  - Migraine [Recovered/Resolved]

NARRATIVE: CASE EVENT DATE: 20210219
